FAERS Safety Report 15801132 (Version 13)
Quarter: 2025Q2

REPORT INFORMATION
  Report Type: Report from Study
  Country: US (occurrence: US)
  Receive Date: 20190109
  Receipt Date: 20250407
  Transmission Date: 20250717
  Serious: Yes (Other)
  Sender: TAKEDA
  Company Number: US-TAKEDA-2019MPI000225

PATIENT
  Age: 81 Year
  Sex: Female

DRUGS (23)
  1. IXAZOMIB [Suspect]
     Active Substance: IXAZOMIB
     Indication: Plasma cell myeloma
  2. IXAZOMIB [Suspect]
     Active Substance: IXAZOMIB
  3. IXAZOMIB [Suspect]
     Active Substance: IXAZOMIB
  4. IXAZOMIB [Suspect]
     Active Substance: IXAZOMIB
     Dosage: 2.3 MILLIGRAM, 1/WEEK
     Dates: start: 20240911
  5. REVLIMID [Suspect]
     Active Substance: LENALIDOMIDE
     Indication: Product used for unknown indication
  6. ASPIRIN [Concomitant]
     Active Substance: ASPIRIN
  7. CALCIUM [Concomitant]
     Active Substance: CALCIUM
  8. VITAMINS [Concomitant]
     Active Substance: VITAMINS
  9. FISH OIL [Concomitant]
     Active Substance: FISH OIL
  10. Soothe [Concomitant]
  11. TYLENOL [Concomitant]
     Active Substance: ACETAMINOPHEN
  12. VITAMIN D3 [Concomitant]
     Active Substance: CHOLECALCIFEROL
  13. ZOMETA [Concomitant]
     Active Substance: ZOLEDRONIC ACID
  14. FAMOTIDINE [Concomitant]
     Active Substance: FAMOTIDINE
  15. VALACYCLOVIR [Concomitant]
     Active Substance: VALACYCLOVIR HYDROCHLORIDE
  16. XGEVA [Concomitant]
     Active Substance: DENOSUMAB
  17. DICLOFENAC [Concomitant]
     Active Substance: DICLOFENAC
  18. FUROSEMIDE [Concomitant]
     Active Substance: FUROSEMIDE
  19. FUROSEMIDE [Concomitant]
     Active Substance: FUROSEMIDE
  20. LISINOPRIL [Concomitant]
     Active Substance: LISINOPRIL
  21. LISINOPRIL [Concomitant]
     Active Substance: LISINOPRIL
  22. DOXYCYCLINE [Concomitant]
     Active Substance: DOXYCYCLINE
  23. POTASSIUM CHLORIDE [Concomitant]
     Active Substance: POTASSIUM CHLORIDE

REACTIONS (11)
  - Plasma cell myeloma recurrent [Unknown]
  - Swelling [Unknown]
  - Peripheral swelling [Unknown]
  - Blood pressure increased [Unknown]
  - Fluid retention [Unknown]
  - Localised infection [Unknown]
  - Skin ulcer [Recovered/Resolved]
  - COVID-19 [Not Recovered/Not Resolved]
  - Inappropriate schedule of product administration [Unknown]
  - Rash [Unknown]
  - Diarrhoea [Unknown]

NARRATIVE: CASE EVENT DATE: 20230124
